FAERS Safety Report 10120456 (Version 1)
Quarter: 2014Q2

REPORT INFORMATION
  Report Type: Report from Study
  Country: CO (occurrence: CO)
  Receive Date: 20140425
  Receipt Date: 20140425
  Transmission Date: 20141212
  Serious: Yes (Death)
  Sender: FDA-Public Use
  Company Number: CO-ABBVIE-14P-036-1229321-00

PATIENT
  Age: 36 Year
  Sex: Male
  Weight: 66 kg

DRUGS (7)
  1. ZEMPLAR [Suspect]
     Indication: HYPERPARATHYROIDISM SECONDARY
     Dosage: POST-DIALYSIS
     Route: 042
     Dates: start: 20121101, end: 20140409
  2. MINOXIDIL [Concomitant]
     Indication: PRODUCT USED FOR UNKNOWN INDICATION
  3. CAPTOPRIL [Concomitant]
     Indication: PRODUCT USED FOR UNKNOWN INDICATION
  4. ACETAMINOPHEN [Concomitant]
     Indication: PRODUCT USED FOR UNKNOWN INDICATION
  5. OMEPRAZOLE [Concomitant]
     Indication: PRODUCT USED FOR UNKNOWN INDICATION
  6. CLOZAPINE [Concomitant]
     Indication: PRODUCT USED FOR UNKNOWN INDICATION
  7. NUTRITIONAL FORMULA [Concomitant]
     Indication: PRODUCT USED FOR UNKNOWN INDICATION

REACTIONS (7)
  - Asthenia [Fatal]
  - Asthenia [Fatal]
  - Myalgia [Fatal]
  - Hypotension [Fatal]
  - Cardiac failure congestive [Fatal]
  - Cardiac murmur [Fatal]
  - Cardio-respiratory arrest [Fatal]
